FAERS Safety Report 4314882-5 (Version None)
Quarter: 2004Q1

REPORT INFORMATION
  Report Type: 
  Country: None (occurrence: None)
  Receive Date: 20040308
  Receipt Date: 20040223
  Transmission Date: 20041129
  Serious: Yes (Death, Hospitalization)
  Sender: FDA-Public Use
  Company Number: 2004200509SE

PATIENT
  Age: 70 Year
  Sex: Female

DRUGS (1)
  1. PREDNISOLONE [Suspect]
     Dosage: 15 MG, QD, ORAL, 7.5 MG, QD, ORAL
     Route: 048

REACTIONS (7)
  - EPSTEIN-BARR VIRUS ANTIGEN POSITIVE [None]
  - GASTROINTESTINAL HAEMORRHAGE [None]
  - HAEMORRHAGE URINARY TRACT [None]
  - HISTIOCYTOSIS HAEMATOPHAGIC [None]
  - HODGKIN'S DISEASE [None]
  - INFECTION [None]
  - INTRA-ABDOMINAL HAEMORRHAGE [None]
